FAERS Safety Report 7088935-5 (Version None)
Quarter: 2010Q4

REPORT INFORMATION
  Report Type: 
  Country: None (occurrence: None)
  Receive Date: 20101028
  Receipt Date: 20101015
  Transmission Date: 20110411
  Serious: Yes (Other)
  Sender: FDA-Public Use
  Company Number: 2010AP002169

PATIENT
  Age: 54 Year
  Sex: Female

DRUGS (2)
  1. LAMOTRIGINE [Suspect]
  2. BUPROPION HYDROCHLORIDE [Suspect]

REACTIONS (3)
  - DERMATITIS [None]
  - MYCOSIS FUNGOIDES [None]
  - PSEUDOLYMPHOMA [None]
